FAERS Safety Report 6201373-X (Version None)
Quarter: 2009Q2

REPORT INFORMATION
  Report Type: 
  Country: None (occurrence: None)
  Receive Date: 20090526
  Receipt Date: 20090518
  Transmission Date: 20091009
  Serious: Yes (Death, Hospitalization)
  Sender: FDA-Public Use
  Company Number: PHHY2009JP03913

PATIENT
  Sex: Male
  Weight: 47 kg

DRUGS (4)
  1. GLEEVEC [Suspect]
     Indication: GASTROINTESTINAL STROMAL TUMOUR
     Dosage: 400 MG DAILY
     Route: 048
     Dates: start: 20071119, end: 20081202
  2. GLEEVEC [Suspect]
     Dosage: 400 MG DAILY
     Route: 048
  3. BERIZYM [Concomitant]
     Indication: ANOREXIA
     Dosage: 3G
     Route: 048
     Dates: start: 20071206, end: 20081202
  4. LASIX [Concomitant]
     Indication: PLEURAL EFFUSION
     Dosage: 20 MG
     Route: 048
     Dates: start: 20080806, end: 20081202

REACTIONS (14)
  - ASPARTATE AMINOTRANSFERASE INCREASED [None]
  - BLOOD GLUCOSE INCREASED [None]
  - BLOOD LACTATE DEHYDROGENASE INCREASED [None]
  - BLOOD SODIUM DECREASED [None]
  - HAEMATOCRIT DECREASED [None]
  - HAEMOGLOBIN DECREASED [None]
  - HYPOKALAEMIA [None]
  - LYMPHOCYTE COUNT DECREASED [None]
  - OEDEMA PERIPHERAL [None]
  - PLEURAL EFFUSION [None]
  - PNEUMONIA [None]
  - PROTHROMBIN TIME PROLONGED [None]
  - RED BLOOD CELL COUNT DECREASED [None]
  - WHITE BLOOD CELL COUNT DECREASED [None]
